FAERS Safety Report 21462740 (Version 1)
Quarter: 2022Q4

REPORT INFORMATION
  Report Type: Report from Study
  Country: US (occurrence: US)
  Receive Date: 20221017
  Receipt Date: 20221017
  Transmission Date: 20230113
  Serious: No
  Sender: FDA-Public Use
  Company Number: US-ABBVIE-4146500

PATIENT
  Sex: Male

DRUGS (3)
  1. HUMIRA [Suspect]
     Active Substance: ADALIMUMAB
     Indication: Crohn^s disease
     Dosage: THERAPY STOP DATE: SEP 2021
     Route: 058
     Dates: start: 20210913
  2. HUMIRA [Suspect]
     Active Substance: ADALIMUMAB
     Route: 058
     Dates: start: 20211011
  3. HUMIRA [Suspect]
     Active Substance: ADALIMUMAB
     Dosage: THERAPY STOP DATE: SEP 2021
     Route: 058
     Dates: start: 20210927

REACTIONS (3)
  - Intestinal stenosis [Unknown]
  - Gastrointestinal sounds abnormal [Unknown]
  - Crohn^s disease [Unknown]
